FAERS Safety Report 25619401 (Version 1)
Quarter: 2025Q3

REPORT INFORMATION
  Report Type: Spontaneous
  Country: MY (occurrence: MY)
  Receive Date: 20250729
  Receipt Date: 20250729
  Transmission Date: 20251020
  Serious: Yes (Other)
  Sender: SCIEGEN PHARMACEUTICALS INC
  Company Number: MY-SCIEGENP-2025SCLIT00185

PATIENT
  Age: 70 Year
  Sex: Female

DRUGS (1)
  1. ATORVASTATIN CALCIUM [Suspect]
     Active Substance: ATORVASTATIN CALCIUM
     Indication: Dyslipidaemia
     Route: 065
     Dates: start: 20230104, end: 20230404

REACTIONS (2)
  - Autoimmune hepatitis [Recovered/Resolved]
  - Primary biliary cholangitis [Recovered/Resolved]
